FAERS Safety Report 5588391-X (Version None)
Quarter: 2008Q1

REPORT INFORMATION
  Report Type: 
  Country: None (occurrence: None)
  Receive Date: 20080111
  Receipt Date: 20071106
  Transmission Date: 20080703
  Serious: No
  Sender: FDA-Public Use
  Company Number: A0691747A

PATIENT
  Age: 50 Year
  Sex: Female

DRUGS (3)
  1. TYKERB [Suspect]
     Indication: BREAST CANCER
     Dosage: 250MG PER DAY
     Route: 048
     Dates: start: 20071102
  2. LOPERAMIDE HCL [Concomitant]
  3. HERCEPTIN [Concomitant]
     Indication: BREAST CANCER
     Route: 042

REACTIONS (1)
  - DIARRHOEA [None]
